FAERS Safety Report 6456231-2 (Version None)
Quarter: 2009Q4

REPORT INFORMATION
  Report Type: 
  Country: None (occurrence: None)
  Receive Date: 20091124
  Receipt Date: 20091124
  Transmission Date: 20100525
  Serious: No
  Sender: FDA-Public Use
  Company Number: None

PATIENT
  Age: 19 Year
  Sex: Female
  Weight: 71.2147 kg

DRUGS (1)
  1. PAROXETINE HCL [Suspect]
     Indication: ANXIETY DISORDER
     Dosage: 30 MG P.O. DAILY SOMETIME LAST YEAR
     Route: 048

REACTIONS (1)
  - THROAT IRRITATION [None]
